FAERS Safety Report 7611692-8 (Version None)
Quarter: 2011Q3

REPORT INFORMATION
  Report Type: 
  Country: None (occurrence: None)
  Receive Date: 20110715
  Receipt Date: 20110705
  Transmission Date: 20111222
  Serious: Yes (Hospitalization, Other)
  Sender: FDA-Public Use
  Company Number: US-MERCK-1106USA00453

PATIENT
  Age: 51 Year
  Sex: Male
  Weight: 110 kg

DRUGS (9)
  1. KRYSTEXXA [Concomitant]
     Route: 042
     Dates: start: 20110321, end: 20110321
  2. BUMEX [Suspect]
     Indication: BLOOD PRESSURE ABNORMAL
     Route: 065
     Dates: start: 20090101, end: 20110418
  3. ANAKINRA [Concomitant]
     Route: 065
  4. KRYSTEXXA [Concomitant]
     Indication: GOUTY TOPHUS
     Route: 042
     Dates: start: 20110307, end: 20110418
  5. KRYSTEXXA [Concomitant]
     Route: 042
     Dates: start: 20110404, end: 20110404
  6. CORTICOSTEROIDS (UNSPECIFIED) [Concomitant]
     Route: 065
     Dates: start: 20110307, end: 20110404
  7. COZAAR [Suspect]
     Indication: BLOOD PRESSURE ABNORMAL
     Route: 048
     Dates: start: 20090101, end: 20110418
  8. COLCHICINE [Suspect]
     Indication: GOUT
     Route: 065
     Dates: start: 20090101, end: 20110418
  9. PREDNISONE [Concomitant]
     Route: 065

REACTIONS (3)
  - HEPATOTOXICITY [None]
  - HEPATIC FAILURE [None]
  - RENAL FAILURE ACUTE [None]
